FAERS Safety Report 13369808 (Version 1)
Quarter: 2017Q1

REPORT INFORMATION
  Report Type: Spontaneous
  Country: US (occurrence: US)
  Receive Date: 20170324
  Receipt Date: 20170324
  Transmission Date: 20170429
  Serious: No
  Sender: FDA-Public Use
  Company Number: US-ROCHE-1249587

PATIENT
  Sex: Male

DRUGS (2)
  1. XOLAIR [Suspect]
     Active Substance: OMALIZUMAB
     Indication: ASTHMA
     Route: 065
     Dates: start: 2008
  2. XOLAIR [Suspect]
     Active Substance: OMALIZUMAB
     Route: 065

REACTIONS (1)
  - Blood immunoglobulin E increased [Unknown]
